FAERS Safety Report 7953438-X (Version None)
Quarter: 2011Q4

REPORT INFORMATION
  Report Type: 
  Country: None (occurrence: None)
  Receive Date: 20111202
  Receipt Date: 20111129
  Transmission Date: 20120403
  Serious: Yes (Other)
  Sender: FDA-Public Use
  Company Number: US-PFIZER INC-2011256130

PATIENT
  Sex: Male
  Weight: 79.4 kg

DRUGS (9)
  1. ALENDRONATE SODIUM [Concomitant]
     Dosage: UNK
  2. POLYETHYLENE GLYCOL [Concomitant]
     Dosage: UNK
  3. LYRICA [Suspect]
     Indication: NEUROPATHY PERIPHERAL
     Dosage: 50 MG, 2X/DAY
     Dates: start: 20111001, end: 20111016
  4. LOVASTATIN [Concomitant]
     Dosage: UNK
  5. PAROXETINE [Concomitant]
     Dosage: UNK
  6. FEXOFENADINE [Concomitant]
     Dosage: UNK
  7. LYRICA [Suspect]
     Dosage: 50 MG, 3X/DAY
     Route: 048
     Dates: start: 20111017
  8. AMITRIPTYLINE [Concomitant]
     Dosage: UNK
  9. KETOCONAZOLE [Concomitant]
     Dosage: UNK

REACTIONS (9)
  - OEDEMA PERIPHERAL [None]
  - POLLAKIURIA [None]
  - SPEECH DISORDER [None]
  - SENSATION OF HEAVINESS [None]
  - PARAESTHESIA OF GENITAL MALE [None]
  - DISTURBANCE IN ATTENTION [None]
  - CONSTIPATION [None]
  - NEUROPATHY PERIPHERAL [None]
  - SOMNAMBULISM [None]
